FAERS Safety Report 7138911-9 (Version None)
Quarter: 2010Q4

REPORT INFORMATION
  Report Type: 
  Country: None (occurrence: None)
  Receive Date: 20101202
  Receipt Date: 20101202
  Transmission Date: 20110411
  Serious: Yes (Other)
  Sender: FDA-Public Use
  Company Number: None

PATIENT
  Sex: Female
  Weight: 113.3993 kg

DRUGS (2)
  1. FLONASE [Suspect]
     Indication: RHINITIS ALLERGIC
     Dosage: SPRAY TO EACH NOSTRIL DAILY NASAL
     Route: 045
  2. FLONASE [Suspect]
     Indication: SEASONAL ALLERGY
     Dosage: SPRAY TO EACH NOSTRIL DAILY NASAL
     Route: 045

REACTIONS (3)
  - EPISTAXIS [None]
  - NASAL DISCOMFORT [None]
  - VOMITING [None]
